FAERS Safety Report 4736416-3 (Version None)
Quarter: 2005Q3

REPORT INFORMATION
  Report Type: 
  Country: None (occurrence: None)
  Receive Date: 20050802
  Receipt Date: 20050728
  Transmission Date: 20060218
  Serious: Yes (Hospitalization)
  Sender: FDA-Public Use
  Company Number: 2005LIDO0025

PATIENT
  Age: 79 Year
  Sex: Female

DRUGS (1)
  1. LIDODERM [Suspect]
     Indication: HYPERAESTHESIA
     Dosage: 1 PATCH A DAY
     Dates: start: 20050411

REACTIONS (1)
  - DERMATITIS CONTACT [None]
